FAERS Safety Report 23855003 (Version 2)
Quarter: 2024Q2

REPORT INFORMATION
  Report Type: Spontaneous
  Country: US (occurrence: US)
  Receive Date: 20240514
  Receipt Date: 20240618
  Transmission Date: 20240716
  Serious: No
  Sender: FDA-Public Use
  Company Number: US-SA-SAC20240506001578

PATIENT
  Age: 72 Year
  Sex: Female

DRUGS (1)
  1. KEVZARA [Suspect]
     Active Substance: SARILUMAB
     Indication: Polymyalgia rheumatica
     Dosage: 200 MG, QOW
     Route: 058
     Dates: start: 202404, end: 2024

REACTIONS (3)
  - Oropharyngeal pain [Unknown]
  - Pharyngeal swelling [Unknown]
  - Aphonia [Unknown]

NARRATIVE: CASE EVENT DATE: 20240401
